FAERS Safety Report 9105523 (Version 1)
Quarter: 2013Q1

REPORT INFORMATION
  Report Type: Spontaneous
  Country: US (occurrence: US)
  Receive Date: 20130221
  Receipt Date: 20130221
  Transmission Date: 20140127
  Serious: No
  Sender: FDA-Public Use
  Company Number: US-TEVA-336925USA

PATIENT
  Age: 55 Year
  Sex: Male

DRUGS (2)
  1. TREANDA [Suspect]
     Indication: NON-HODGKIN^S LYMPHOMA REFRACTORY
     Route: 042
  2. MONOCLONAL ANTIBODIES [Concomitant]
     Indication: NON-HODGKIN^S LYMPHOMA REFRACTORY

REACTIONS (1)
  - Phlebitis [Recovered/Resolved]
